FAERS Safety Report 6235420-6 (Version None)
Quarter: 2009Q2

REPORT INFORMATION
  Report Type: 
  Country: None (occurrence: None)
  Receive Date: 20090616
  Receipt Date: 20090608
  Transmission Date: 20091009
  Serious: Yes (Hospitalization)
  Sender: FDA-Public Use
  Company Number: 2009AL003784

PATIENT
  Age: 70 Year
  Sex: Female

DRUGS (8)
  1. RAMIPRIL [Suspect]
     Indication: HYPERTENSION
     Dosage: 10 MG; BID; PO
     Route: 048
     Dates: start: 20090415
  2. TRIMIPRAMINE CAPSULES 25 MG (ATLLC) (TRIMIPRAMINE CAPSULES 25 MG (ATLL [Suspect]
     Indication: DEPRESSION
     Dosage: 25 MG; QD; PO
     Route: 048
  3. TRAMADOL HYDROCHLORIDE [Suspect]
     Indication: PAIN
     Dosage: 100 MG; TID; PO
     Route: 048
     Dates: start: 19990101
  4. TELMISARTAN [Concomitant]
  5. METOPROLOL SUCCINATE [Concomitant]
  6. PANTOPRAZOLE SODIUM [Concomitant]
  7. ZOLPIDEM TARTRATE [Concomitant]
  8. SIMVASTATIN [Concomitant]

REACTIONS (3)
  - HYPERTENSIVE CRISIS [None]
  - HYPONATRAEMIA [None]
  - MALAISE [None]
